FAERS Safety Report 7045046-2 (Version None)
Quarter: 2010Q4

REPORT INFORMATION
  Report Type: 
  Country: None (occurrence: None)
  Receive Date: 20101008
  Receipt Date: 20101008
  Transmission Date: 20110411
  Serious: No
  Sender: FDA-Public Use
  Company Number: None

PATIENT
  Sex: Female
  Weight: 67.36 kg

DRUGS (6)
  1. CLOZAPINE [Suspect]
     Indication: SCHIZOAFFECTIVE DISORDER
     Dosage: 50 MG HS PO
     Route: 048
     Dates: start: 20100817, end: 20100902
  2. CLOZAPINE [Suspect]
     Dosage: 200 MG HS PO
     Route: 048
     Dates: start: 20100817, end: 20100902
  3. BENZTROPINE MESYLATE [Concomitant]
  4. LITHIUM CARBONATE [Concomitant]
  5. ALBUTEROL INHALER [Concomitant]
  6. SIMVASTATIN [Concomitant]

REACTIONS (2)
  - NEUTROPHIL COUNT DECREASED [None]
  - REFUSAL OF TREATMENT BY PATIENT [None]
